FAERS Safety Report 18843657 (Version 1)
Quarter: 2021Q1

REPORT INFORMATION
  Report Type: Report from Study
  Country: US (occurrence: US)
  Receive Date: 20210203
  Receipt Date: 20210203
  Transmission Date: 20210419
  Serious: No
  Sender: FDA-Public Use
  Company Number: US-EXELIXIS-CABO-20027900

PATIENT
  Sex: Female

DRUGS (14)
  1. CABOMETYX [Suspect]
     Active Substance: CABOZANTINIB S-MALATE
     Dosage: 20 MG ALTERNATING WITH 40 MG EVERY OTHER DAY
  2. CABOMETYX [Suspect]
     Active Substance: CABOZANTINIB S-MALATE
     Dosage: 20 MG ALTERNATING WITH 40 MG EVERY OTHER DAY
  3. PROCHLORPERAZINE. [Concomitant]
     Active Substance: PROCHLORPERAZINE
  4. LEVOTHYROXINE SODIUM. [Concomitant]
     Active Substance: LEVOTHYROXINE SODIUM
  5. LIDOCAINE. [Concomitant]
     Active Substance: LIDOCAINE
  6. LORAZEPAM. [Concomitant]
     Active Substance: LORAZEPAM
  7. BUPROPION. [Concomitant]
     Active Substance: BUPROPION
  8. CABOMETYX [Suspect]
     Active Substance: CABOZANTINIB S-MALATE
     Indication: RENAL CELL CARCINOMA
     Dosage: UNK
     Dates: start: 201904
  9. BUSPIRONE [Concomitant]
     Active Substance: BUSPIRONE HYDROCHLORIDE
  10. METOPROLOL. [Concomitant]
     Active Substance: METOPROLOL
  11. AMLODIPINE [Concomitant]
     Active Substance: AMLODIPINE BESYLATE
  12. ONDANSETRON [Concomitant]
     Active Substance: ONDANSETRON
  13. PANTOPRAZOLE [Concomitant]
     Active Substance: PANTOPRAZOLE
  14. PAROXETINE. [Concomitant]
     Active Substance: PAROXETINE

REACTIONS (7)
  - Fatigue [Recovering/Resolving]
  - Inappropriate schedule of product administration [Unknown]
  - Pruritus [Unknown]
  - Diarrhoea [Recovering/Resolving]
  - Confusional state [Recovering/Resolving]
  - Memory impairment [Recovering/Resolving]
  - Arthritis [Unknown]
